FAERS Safety Report 25483212 (Version 3)
Quarter: 2025Q3

REPORT INFORMATION
  Report Type: Report from Study
  Country: GB (occurrence: GB)
  Receive Date: 20250626
  Receipt Date: 20250710
  Transmission Date: 20251020
  Serious: Yes (Other)
  Sender: ABBVIE
  Company Number: GB-ABBVIE-6338860

PATIENT
  Age: 54 Year
  Sex: Female
  Weight: 64.4 kg

DRUGS (2)
  1. MIRVETUXIMAB SORAVTANSINE [Suspect]
     Active Substance: MIRVETUXIMAB SORAVTANSINE
     Indication: Ovarian epithelial cancer
     Dosage: 6 MG/KG
     Route: 042
     Dates: start: 20250414, end: 20250505
  2. MIRVETUXIMAB SORAVTANSINE [Suspect]
     Active Substance: MIRVETUXIMAB SORAVTANSINE
     Indication: Ovarian epithelial cancer
     Dosage: 5 MG/KG
     Route: 042
     Dates: start: 202505

REACTIONS (3)
  - Keratopathy [Recovering/Resolving]
  - Intercepted medication error [Unknown]
  - Dose calculation error [Unknown]

NARRATIVE: CASE EVENT DATE: 20250516
